FAERS Safety Report 23448478 (Version 1)
Quarter: 2024Q1

REPORT INFORMATION
  Report Type: Spontaneous
  Country: CN (occurrence: None)
  Receive Date: 20240127
  Receipt Date: 20240127
  Transmission Date: 20240409
  Serious: Yes (Hospitalization, Other)
  Sender: FDA-Public Use
  Company Number: CN-ROCHE-3494186

PATIENT
  Age: 9 Year
  Sex: Male

DRUGS (8)
  1. ACTEMRA [Suspect]
     Active Substance: TOCILIZUMAB
     Indication: Still^s disease
     Route: 042
  2. HUMAN IMMUNOGLOBULIN G [Concomitant]
     Active Substance: HUMAN IMMUNOGLOBULIN G
  3. CYCLOSPORINE [Concomitant]
     Active Substance: CYCLOSPORINE
  4. METHYLPREDNISOLONE [Concomitant]
     Active Substance: METHYLPREDNISOLONE
  5. METHOTREXATE [Concomitant]
     Active Substance: METHOTREXATE
  6. TOFACITINIB [Concomitant]
     Active Substance: TOFACITINIB
  7. MEROPENEM [Concomitant]
     Active Substance: MEROPENEM
  8. FOLIC ACID [Concomitant]
     Active Substance: FOLIC ACID

REACTIONS (13)
  - Rash [Recovering/Resolving]
  - Anaphylactic shock [Unknown]
  - Pallor [Unknown]
  - Dyspnoea [Unknown]
  - Pyrexia [Recovered/Resolved]
  - White blood cell count increased [Unknown]
  - Neutrophil count increased [Unknown]
  - Serum ferritin increased [Unknown]
  - Hyperpyrexia [Recovered/Resolved]
  - Lymphadenopathy [Unknown]
  - Platelet count increased [Unknown]
  - Alanine aminotransferase [Unknown]
  - Aspartate aminotransferase increased [Unknown]
